FAERS Safety Report 7497114-9 (Version None)
Quarter: 2011Q2

REPORT INFORMATION
  Report Type: 
  Country: None (occurrence: None)
  Receive Date: 20110523
  Receipt Date: 20110512
  Transmission Date: 20111010
  Serious: Yes (Hospitalization)
  Sender: FDA-Public Use
  Company Number: PHHY2011ES41642

PATIENT
  Age: 41 Year
  Sex: Male

DRUGS (3)
  1. METHOTREXATE [Suspect]
  2. NAPROXEN [Concomitant]
  3. PREDNISONE [Concomitant]

REACTIONS (9)
  - RENAL FAILURE [None]
  - NAUSEA [None]
  - HEPATITIS B DNA INCREASED [None]
  - HEPATITIS B [None]
  - DIARRHOEA [None]
  - JAUNDICE [None]
  - CHOLESTASIS [None]
  - DRUG WITHDRAWAL SYNDROME [None]
  - CELL DEATH [None]
